FAERS Safety Report 9258351 (Version 1)
Quarter: 2013Q2

REPORT INFORMATION
  Report Type: Spontaneous
  Country: US (occurrence: US)
  Receive Date: 20130426
  Receipt Date: 20130426
  Transmission Date: 20140414
  Serious: No
  Sender: FDA-Public Use
  Company Number: US-B.I. PHARMACEUTICALS,INC./RIDGEFIELD-2013-BI-10307BP

PATIENT
  Sex: Female
  Weight: 62.5 kg

DRUGS (2)
  1. ATROVENT [Suspect]
     Indication: ASTHMA
     Dosage: 1 PUF
     Dates: start: 2013
  2. PREMARIN VAGINAL CREAM [Concomitant]

REACTIONS (1)
  - Asthma [Not Recovered/Not Resolved]
